FAERS Safety Report 10698913 (Version 2)
Quarter: 2015Q1

REPORT INFORMATION
  Report Type: Spontaneous
  Country: FR (occurrence: FR)
  Receive Date: 20150108
  Receipt Date: 20150202
  Transmission Date: 20150721
  Serious: Yes (Other)
  Sender: FDA-Public Use
  Company Number: PHHY2015FR001196

PATIENT
  Age: 38 Year
  Sex: Female
  Weight: 110 kg

DRUGS (1)
  1. PARACETAMOL SANDOZ [Suspect]
     Active Substance: ACETAMINOPHEN
     Indication: HEADACHE
     Dosage: 10 G, (TOTAL)
     Route: 048
     Dates: start: 20141030, end: 20141030

REACTIONS (3)
  - Abdominal pain lower [Recovered/Resolved]
  - Medication error [Recovered/Resolved]
  - Overdose [Recovered/Resolved]

NARRATIVE: CASE EVENT DATE: 20141030
